FAERS Safety Report 7035486-X (Version None)
Quarter: 2010Q4

REPORT INFORMATION
  Report Type: 
  Country: None (occurrence: None)
  Receive Date: 20101008
  Receipt Date: 20101001
  Transmission Date: 20110411
  Serious: Yes (Death, Life-Threatening)
  Sender: FDA-Public Use
  Company Number: FR-PFIZER INC-2010121976

PATIENT
  Age: 80 Year
  Sex: Female

DRUGS (7)
  1. VFEND [Suspect]
     Indication: CANDIDIASIS
     Dosage: 200 MG, UNK
     Route: 042
     Dates: start: 20100508, end: 20100518
  2. VFEND [Suspect]
     Dosage: 200 MG, UNK
     Route: 042
     Dates: start: 20100524, end: 20100526
  3. CEFTAZIDIME [Suspect]
     Dosage: UNK
     Route: 042
     Dates: start: 20100512
  4. AMIODARONE [Concomitant]
     Indication: ATRIAL FIBRILLATION
     Dosage: UNK
     Route: 042
     Dates: start: 20100516
  5. NICARDIPINE [Concomitant]
     Dosage: 10 MG/10ML
     Route: 042
     Dates: start: 20100520
  6. PROPRANOLOL [Concomitant]
     Dosage: UNK
     Route: 048
     Dates: start: 20100503
  7. HYDROXYZINE [Concomitant]
     Dosage: 100MG/2ML
     Route: 042
     Dates: start: 20100520

REACTIONS (2)
  - DEATH [None]
  - PANCYTOPENIA [None]
